FAERS Safety Report 10236123 (Version 2)
Quarter: 2014Q2

REPORT INFORMATION
  Report Type: Spontaneous
  Country: GR (occurrence: GR)
  Receive Date: 20140613
  Receipt Date: 20140619
  Transmission Date: 20141212
  Serious: Yes (Hospitalization)
  Sender: FDA-Public Use
  Company Number: GR-BAYER-2014-084329

PATIENT
  Age: 71 Year
  Sex: Male

DRUGS (3)
  1. ULTRAVIST [Suspect]
     Indication: COMPUTERISED TOMOGRAM
     Dosage: 130 ML, ONCE
     Route: 042
     Dates: start: 20140602, end: 20140602
  2. ULTRAVIST [Suspect]
     Indication: COMPUTERISED TOMOGRAM THORAX
  3. ULTRAVIST [Suspect]
     Indication: COMPUTERISED TOMOGRAM ABDOMEN

REACTIONS (6)
  - Injection site extravasation [None]
  - Injection site swelling [None]
  - Hot flush [None]
  - Dysphonia [None]
  - Hypertension [None]
  - Stress [None]
